FAERS Safety Report 11285572 (Version 9)
Quarter: 2015Q4

REPORT INFORMATION
  Report Type: Spontaneous
  Country: BR (occurrence: BR)
  Receive Date: 20150720
  Receipt Date: 20151113
  Transmission Date: 20160304
  Serious: Yes (Hospitalization, Other)
  Sender: FDA-Public Use
  Company Number: PHHY2015BR086702

PATIENT
  Age: 77 Year
  Sex: Male
  Weight: 72 kg

DRUGS (10)
  1. NIQUITIN [Suspect]
     Active Substance: NICOTINE
     Indication: SMOKING CESSATION THERAPY
     Dosage: 1 DF (21 MG), QD
     Route: 062
     Dates: start: 2014, end: 2014
  2. ONBREZ BREEZHALER [Suspect]
     Active Substance: INDACATEROL
     Indication: LUNG DISORDER
     Dosage: 1 DF, QD
     Route: 055
  3. NIQUITIN [Suspect]
     Active Substance: NICOTINE
     Dosage: 1 DF (14 MG), QD
     Route: 062
     Dates: start: 2014, end: 2014
  4. MIFLASONE [Suspect]
     Active Substance: BECLOMETHASONE DIPROPIONATE
     Dosage: UNK (400 UG), UNK
     Route: 065
  5. SIMVASTATIN. [Concomitant]
     Active Substance: SIMVASTATIN
     Indication: BLOOD CHOLESTEROL ABNORMAL
     Dosage: 1 DF, QD
     Route: 048
     Dates: start: 201305
  6. MIFLONIDE [Suspect]
     Active Substance: BUDESONIDE
     Indication: LUNG DISORDER
     Dosage: 1 DF, Q12H
     Route: 055
  7. MIFLASONE [Suspect]
     Active Substance: BECLOMETHASONE DIPROPIONATE
     Indication: PRODUCT USED FOR UNKNOWN INDICATION
     Dosage: UNK (200 UG), UNK
     Route: 065
  8. PANTOPRAZOLE [Concomitant]
     Active Substance: PANTOPRAZOLE SODIUM
     Indication: GASTRITIS PROPHYLAXIS
     Dosage: 1 DF, QD
     Route: 048
  9. ONBREZ BREEZHALER [Suspect]
     Active Substance: INDACATEROL
     Dosage: 1 DF, QD
     Route: 055
  10. CLONAZEPAM. [Concomitant]
     Active Substance: CLONAZEPAM
     Indication: SEDATIVE THERAPY
     Dosage: 1 DF, QD
     Route: 048

REACTIONS (12)
  - Cardiovascular disorder [Unknown]
  - Wrong technique in product usage process [Unknown]
  - Off label use [Unknown]
  - Cardiac disorder [Unknown]
  - Myocardial infarction [Recovered/Resolved]
  - Tachycardia [Recovered/Resolved]
  - Heart rate increased [Not Recovered/Not Resolved]
  - Chest pain [Unknown]
  - Device malfunction [Unknown]
  - Gastritis [Recovered/Resolved]
  - Abdominal pain upper [Recovered/Resolved]
  - Nervousness [Not Recovered/Not Resolved]

NARRATIVE: CASE EVENT DATE: 20130513
